FAERS Safety Report 10681103 (Version 1)
Quarter: 2014Q4

REPORT INFORMATION
  Report Type: Spontaneous
  Country: KR (occurrence: KR)
  Receive Date: 20141229
  Receipt Date: 20141229
  Transmission Date: 20150529
  Serious: Yes (Death)
  Sender: FDA-Public Use
  Company Number: PHHY2014KR167932

PATIENT
  Age: 68 Year
  Sex: Male

DRUGS (1)
  1. MEROPENEM. [Suspect]
     Active Substance: MEROPENEM
     Indication: RAOULTELLA ORNITHINOLYTICA INFECTION
     Route: 065

REACTIONS (3)
  - Raoultella ornithinolytica infection [Fatal]
  - Drug ineffective [Fatal]
  - Septic shock [Fatal]
